FAERS Safety Report 20559997 (Version 1)
Quarter: 2022Q1

REPORT INFORMATION
  Report Type: Spontaneous
  Country: US (occurrence: None)
  Receive Date: 20220304
  Receipt Date: 20220304
  Transmission Date: 20220424
  Serious: Yes (Other)
  Sender: FDA-Public Use
  Company Number: None

PATIENT
  Age: 62 Year
  Sex: Female
  Weight: 92.25 kg

DRUGS (6)
  1. NURTEC ODT [Suspect]
     Active Substance: RIMEGEPANT SULFATE
     Indication: Headache
     Dosage: FREQUENCY : EVERY OTHER DAY;?
     Route: 060
     Dates: start: 20220226, end: 20220228
  2. TOPROL XL [Concomitant]
     Active Substance: METOPROLOL SUCCINATE
  3. CLIMARA [Concomitant]
     Active Substance: ESTRADIOL
  4. VITAMIN D [Concomitant]
     Active Substance: VITAMIN D NOS
  5. VITAMINS [Concomitant]
     Active Substance: VITAMINS
  6. Probiotic gummy [Concomitant]

REACTIONS (3)
  - Pruritus [None]
  - Urticaria [None]
  - Feeling hot [None]

NARRATIVE: CASE EVENT DATE: 20220301
